FAERS Safety Report 5341076-7 (Version None)
Quarter: 2007Q2

REPORT INFORMATION
  Report Type: 
  Country: None (occurrence: None)
  Receive Date: 20070405
  Receipt Date: 20061213
  Transmission Date: 20071010
  Serious: No
  Sender: FDA-Public Use
  Company Number: US200609001882

PATIENT
  Age: 59 Year
  Sex: Female

DRUGS (12)
  1. CYMBALTA [Suspect]
     Indication: MUSCLE SPASMS
     Dosage: SEE IMAGE
     Route: 048
     Dates: start: 20051001, end: 20051001
  2. CYMBALTA [Suspect]
     Indication: MUSCLE SPASMS
     Dosage: SEE IMAGE
     Route: 048
     Dates: start: 20051001, end: 20060101
  3. CYMBALTA [Suspect]
     Indication: MUSCLE SPASMS
     Dosage: SEE IMAGE
     Route: 048
     Dates: start: 20060101, end: 20060101
  4. CYMBALTA [Suspect]
     Indication: MUSCLE SPASMS
     Dosage: SEE IMAGE
     Route: 048
     Dates: start: 20060101
  5. CYMBALTA [Suspect]
     Indication: MUSCLE SPASMS
     Dosage: SEE IMAGE
     Route: 048
     Dates: start: 20060101
  6. AVONEX [Concomitant]
  7. IBUPROFEN [Concomitant]
  8. PROVIGIL [Concomitant]
  9. SYNTHROID [Concomitant]
  10. DETROL [Concomitant]
  11. ZETIA [Concomitant]
  12. NEURONTIN [Concomitant]

REACTIONS (6)
  - BURNING SENSATION [None]
  - FEELING ABNORMAL [None]
  - GAIT DISTURBANCE [None]
  - HEADACHE [None]
  - MUSCLE SPASMS [None]
  - WALKING AID USER [None]
